FAERS Safety Report 17674587 (Version 2)
Quarter: 2020Q2

REPORT INFORMATION
  Report Type: Spontaneous
  Country: DE (occurrence: DE)
  Receive Date: 20200416
  Receipt Date: 20200615
  Transmission Date: 20200714
  Serious: Yes (Life-Threatening, Disabling, Other)
  Sender: FDA-Public Use
  Company Number: DE-ASTRAZENECA-2020SE51338

PATIENT
  Age: 49 Year
  Sex: Female
  Weight: 69.7 kg

DRUGS (1)
  1. LYNPARZA [Suspect]
     Active Substance: OLAPARIB
     Indication: TRIPLE NEGATIVE BREAST CANCER
     Dosage: 600.0MG UNKNOWN
     Route: 048
     Dates: start: 201911, end: 202002

REACTIONS (2)
  - Triple negative breast cancer [Not Recovered/Not Resolved]
  - Drug ineffective [Not Recovered/Not Resolved]

NARRATIVE: CASE EVENT DATE: 202002
